FAERS Safety Report 6046992-9 (Version None)
Quarter: 2009Q1

REPORT INFORMATION
  Report Type: 
  Country: None (occurrence: None)
  Receive Date: 20090116
  Receipt Date: 20090107
  Transmission Date: 20090719
  Serious: Yes (Other)
  Sender: FDA-Public Use
  Company Number: AECAN200700277

PATIENT
  Age: 88 Year
  Sex: Male

DRUGS (2)
  1. ALBUMIN (HUMAN) [Suspect]
     Indication: GENERALISED OEDEMA
     Dosage: 50 ML; 1X; IV
     Route: 042
     Dates: start: 20071130, end: 20071203
  2. LASIX [Suspect]
     Indication: GENERALISED OEDEMA
     Dates: start: 20071130, end: 20071203

REACTIONS (2)
  - HYPOTENSION [None]
  - INFUSION RELATED REACTION [None]
